FAERS Safety Report 6428587-8 (Version None)
Quarter: 2009Q4

REPORT INFORMATION
  Report Type: 
  Country: None (occurrence: None)
  Receive Date: 20091102
  Receipt Date: 20091021
  Transmission Date: 20100525
  Serious: Yes (Hospitalization)
  Sender: FDA-Public Use
  Company Number: 2009-04386

PATIENT
  Age: 47 Year
  Sex: Male
  Weight: 72.4 kg

DRUGS (2)
  1. VELCADE [Suspect]
     Indication: RECTAL CANCER
     Dosage: 1 MG/M2, IV BOLUS
     Route: 040
     Dates: start: 20091006, end: 20091013
  2. 17-AAG(17-ALLYLAMINO-17-DEMETHOXYGELDANAMYCIN) INFUSION [Suspect]
     Indication: RECTAL CANCER
     Dosage: 250 MG/M2, INTRAVENOUS
     Route: 042
     Dates: start: 20091006, end: 20091013

REACTIONS (5)
  - INFECTION [None]
  - LEUKOCYTOSIS [None]
  - NAUSEA [None]
  - SMALL INTESTINAL OBSTRUCTION [None]
  - VOMITING [None]
